FAERS Safety Report 8144377-2 (Version None)
Quarter: 2012Q1

REPORT INFORMATION
  Report Type: 
  Country: None (occurrence: None)
  Receive Date: 20120217
  Receipt Date: 20120214
  Transmission Date: 20120608
  Serious: Yes (Life-Threatening, Hospitalization, Other)
  Sender: FDA-Public Use
  Company Number: CH-GENZYME-CLOF-1001926

PATIENT
  Sex: Male
  Weight: 70 kg

DRUGS (10)
  1. AMSACRINE [Suspect]
     Indication: HAEMATOLOGICAL MALIGNANCY
     Dosage: 220 MG, UNK
     Route: 042
     Dates: start: 20120121, end: 20120123
  2. CYTARABINE [Suspect]
     Indication: HAEMATOLOGICAL MALIGNANCY
     Dosage: 390 MG X 1, DAY 1-7
     Route: 042
     Dates: start: 20111116, end: 20111122
  3. IDARUBICIN HCL [Suspect]
     Indication: HAEMATOLOGICAL MALIGNANCY
     Dosage: 24 MG X 1, DAY 1-3
     Route: 042
     Dates: start: 20111116, end: 20111118
  4. PROPOFOL [Concomitant]
     Indication: SEDATION
     Dosage: 100 MG, Q1HR
     Route: 042
     Dates: start: 20120128, end: 20120207
  5. VALACICLOVIR [Concomitant]
     Indication: HERPES SIMPLEX
     Dosage: 500 MG, 2 TABLETS 3 X
     Route: 048
     Dates: start: 20111115, end: 20111125
  6. VALACICLOVIR [Concomitant]
     Indication: STOMATITIS
  7. EVOLTRA [Suspect]
     Indication: HAEMATOLOGICAL MALIGNANCY
     Dosage: 19.5 MG X 1, DAY 1-5
     Route: 042
     Dates: start: 20111116, end: 20111120
  8. CYTARABINE [Suspect]
     Dosage: 1800 MG X2
     Route: 042
     Dates: start: 20120118, end: 20120123
  9. AMPHOTERICIN B [Concomitant]
     Indication: FUNGAL INFECTION
     Dosage: 350 MG, QD
     Route: 042
     Dates: start: 20120208
  10. EVOLTRA [Suspect]
     Dosage: 18 MG (10MG/M2), UNK
     Route: 042
     Dates: start: 20120118, end: 20120122

REACTIONS (4)
  - LUNG INFECTION [None]
  - BLOOD CREATINE PHOSPHOKINASE INCREASED [None]
  - RHABDOMYOLYSIS [None]
  - SEPSIS [None]
